APPROVED DRUG PRODUCT: BUTALBITAL, ACETAMINOPHEN AND CAFFEINE
Active Ingredient: ACETAMINOPHEN; BUTALBITAL; CAFFEINE
Strength: 750MG;50MG;40MG
Dosage Form/Route: TABLET;ORAL
Application: A040496 | Product #001
Applicant: MIKART LLC
Approved: Dec 23, 2003 | RLD: No | RS: No | Type: DISCN